FAERS Safety Report 19108354 (Version 1)
Quarter: 2021Q2

REPORT INFORMATION
  Report Type: Spontaneous
  Country: IN (occurrence: IN)
  Receive Date: 20210408
  Receipt Date: 20210408
  Transmission Date: 20210717
  Serious: Yes (Hospitalization)
  Sender: FDA-Public Use
  Company Number: IN-MYLANLABS-2021M1020977

PATIENT
  Age: 65 Year
  Sex: Male

DRUGS (3)
  1. RAMIPRIL. [Concomitant]
     Active Substance: RAMIPRIL
     Indication: NEPHROTIC SYNDROME
     Dosage: 5 MILLIGRAM, QD CONTINUED AT THE SAME DOSE..
     Route: 065
  2. TACROLIMUS. [Suspect]
     Active Substance: TACROLIMUS
     Indication: NEPHROTIC SYNDROME
     Dosage: 2.5 MILLIGRAM, BID
     Route: 065
  3. TORSEMIDE. [Concomitant]
     Active Substance: TORSEMIDE
     Indication: NEPHROTIC SYNDROME
     Dosage: 20 MILLIGRAM, QD
     Route: 065

REACTIONS (1)
  - Mania [Recovered/Resolved]
